FAERS Safety Report 14802657 (Version 16)
Quarter: 2019Q2

REPORT INFORMATION
  Report Type: Spontaneous
  Country: US (occurrence: US)
  Receive Date: 20180424
  Receipt Date: 20190626
  Transmission Date: 20190711
  Serious: Yes (Hospitalization, Other)
  Sender: FDA-Public Use
  Company Number: US-ACTELION-A-NJ2018-170399

PATIENT
  Age: 64 Year
  Sex: Female

DRUGS (14)
  1. MULTIVITAMIN [Concomitant]
     Active Substance: VITAMINS
     Dosage: UNK
     Dates: start: 20180615
  2. UPTRAVI [Suspect]
     Active Substance: SELEXIPAG
     Dosage: 200 MG, QD
     Route: 048
     Dates: start: 20180212
  3. LEVOTHYROXINE. [Concomitant]
     Active Substance: LEVOTHYROXINE
     Dosage: UNK
     Dates: start: 20180615
  4. MINERALS [Concomitant]
     Active Substance: MINERALS
     Dosage: UNK
     Dates: start: 20180615
  5. NORCO [Concomitant]
     Active Substance: ACETAMINOPHEN\HYDROCODONE BITARTRATE
     Dosage: UNK
     Dates: start: 20180615
  6. ONDANSETRON [Concomitant]
     Active Substance: ONDANSETRON
     Dosage: UNK
     Dates: start: 20180615
  7. UPTRAVI [Suspect]
     Active Substance: SELEXIPAG
     Dosage: 200 AND 800 MCG, BID
     Route: 048
  8. OPSUMIT [Suspect]
     Active Substance: MACITENTAN
     Dosage: 10 MG, QD
     Route: 048
     Dates: start: 20190523, end: 20190524
  9. UPTRAVI [Suspect]
     Active Substance: SELEXIPAG
     Dosage: 400 MCG, BID
     Route: 048
     Dates: start: 20180401
  10. CITALOPRAM [Concomitant]
     Active Substance: CITALOPRAM HYDROBROMIDE
     Dosage: 20 MG, QD
     Dates: start: 20180615
  11. OPSUMIT [Suspect]
     Active Substance: MACITENTAN
     Indication: PULMONARY ARTERIAL HYPERTENSION
     Dosage: 10 MG, QD
     Route: 048
     Dates: start: 20160803, end: 20190518
  12. UPTRAVI [Suspect]
     Active Substance: SELEXIPAG
     Indication: PULMONARY ARTERIAL HYPERTENSION
     Dosage: 600 MCG, BID
     Route: 048
  13. ADVIL [Concomitant]
     Active Substance: IBUPROFEN
     Dosage: 200 MG, PRN
     Dates: start: 20180615
  14. FLAXSEED [Concomitant]
     Active Substance: FLAX SEED
     Dosage: UNK
     Dates: start: 20180615

REACTIONS (26)
  - Therapy non-responder [Unknown]
  - Lymphoma [Not Recovered/Not Resolved]
  - Colitis [Recovered/Resolved]
  - Product dose omission [Unknown]
  - Breast conserving surgery [Recovered/Resolved]
  - Biopsy breast abnormal [Unknown]
  - Headache [Recovering/Resolving]
  - Muscular weakness [Recovered/Resolved]
  - Haematochezia [Recovered/Resolved]
  - Left atrial enlargement [Unknown]
  - Blood urea decreased [Unknown]
  - Pain [Recovered/Resolved]
  - Abdominal pain lower [Recovered/Resolved]
  - Arthralgia [Unknown]
  - Myalgia [Unknown]
  - Fatigue [Recovered/Resolved]
  - Influenza like illness [Unknown]
  - Pollakiuria [Not Recovered/Not Resolved]
  - Memory impairment [Unknown]
  - Ligament sprain [Unknown]
  - Blood creatinine decreased [Unknown]
  - Asthenia [Recovered/Resolved]
  - Vomiting [Recovered/Resolved]
  - Adverse event [Unknown]
  - Fall [Unknown]
  - Blood urea nitrogen/creatinine ratio decreased [Unknown]

NARRATIVE: CASE EVENT DATE: 201703
